FAERS Safety Report 7704204-1 (Version None)
Quarter: 2011Q3

REPORT INFORMATION
  Report Type: 
  Country: None (occurrence: None)
  Receive Date: 20110823
  Receipt Date: 20110811
  Transmission Date: 20111222
  Serious: Yes (Other)
  Sender: FDA-Public Use
  Company Number: US-ASTRAZENECA-2011SE48788

PATIENT
  Age: 63 Year
  Sex: Female

DRUGS (1)
  1. CRESTOR [Suspect]
     Route: 048

REACTIONS (4)
  - DIABETES MELLITUS [None]
  - MYOCARDIAL INFARCTION [None]
  - DRUG DOSE OMISSION [None]
  - BLOOD CHOLESTEROL INCREASED [None]
